FAERS Safety Report 8185907-4 (Version None)
Quarter: 2012Q1

REPORT INFORMATION
  Report Type: 
  Country: None (occurrence: None)
  Receive Date: 20120305
  Receipt Date: 20120301
  Transmission Date: 20120608
  Serious: Yes (Life-Threatening, Other)
  Sender: FDA-Public Use
  Company Number: ZA-ASTRAZENECA-2012SE14630

PATIENT
  Age: 43 Year
  Sex: Female

DRUGS (1)
  1. SYMBICORT [Suspect]
     Indication: BRONCHOSPASM
     Route: 055

REACTIONS (4)
  - DRUG PRESCRIBING ERROR [None]
  - SWELLING FACE [None]
  - ANAPHYLACTIC REACTION [None]
  - PALPITATIONS [None]
